FAERS Safety Report 17655954 (Version 1)
Quarter: 2020Q2

REPORT INFORMATION
  Report Type: Other
  Country: PT (occurrence: PT)
  Receive Date: 20200410
  Receipt Date: 20200410
  Transmission Date: 20200713
  Serious: Yes (Other)
  Sender: FDA-Public Use
  Company Number: PT-EMD SERONO-9091668

PATIENT
  Age: 74 Year
  Sex: Female

DRUGS (3)
  1. COBAMAMIDE [Concomitant]
     Active Substance: COBAMAMIDE
     Indication: VITAMIN B12 DEFICIENCY
     Route: 030
  2. METFORMIN [Suspect]
     Active Substance: METFORMIN HYDROCHLORIDE
     Indication: PRODUCT USED FOR UNKNOWN INDICATION
  3. SIMVASTATIN. [Interacting]
     Active Substance: SIMVASTATIN
     Indication: PRODUCT USED FOR UNKNOWN INDICATION
     Route: 048

REACTIONS (9)
  - Helicobacter infection [Unknown]
  - Mean cell volume abnormal [Unknown]
  - Memory impairment [Unknown]
  - Disturbance in attention [Unknown]
  - Drug interaction [Unknown]
  - Malabsorption [Unknown]
  - Vitamin B12 deficiency [Unknown]
  - Asthenia [Unknown]
  - Helicobacter gastritis [Unknown]
